FAERS Safety Report 5649094-6 (Version None)
Quarter: 2008Q1

REPORT INFORMATION
  Report Type: 
  Country: None (occurrence: None)
  Receive Date: 20080304
  Receipt Date: 20080219
  Transmission Date: 20080703
  Serious: Yes (Hospitalization)
  Sender: FDA-Public Use
  Company Number: US-ELI_LILLY_AND_COMPANY-US200802004512

PATIENT
  Sex: Female

DRUGS (4)
  1. FORTEO [Suspect]
     Indication: OSTEOPOROSIS
     Dosage: UNK, UNK
     Dates: start: 20080101, end: 20080101
  2. FORTEO [Suspect]
     Dates: start: 20080101
  3. INSULIN [Concomitant]
     Dosage: UNK, UNK
     Dates: start: 19980101
  4. FUROSEMIDE [Concomitant]
     Dosage: 60 MG, DAILY (1/D)

REACTIONS (5)
  - ABDOMINAL PAIN [None]
  - BLOOD SODIUM DECREASED [None]
  - CHOLELITHIASIS [None]
  - OEDEMA PERIPHERAL [None]
  - PAIN [None]
